FAERS Safety Report 5167819-3 (Version None)
Quarter: 2006Q4

REPORT INFORMATION
  Report Type: 
  Country: None (occurrence: None)
  Receive Date: 20061130
  Receipt Date: 20061130
  Transmission Date: 20070319
  Serious: No
  Sender: FDA-Public Use
  Company Number: None

PATIENT
  Age: 51 Year
  Sex: Female
  Weight: 79.3795 kg

DRUGS (1)
  1. VERSED [Suspect]
     Dosage: 2MLS IV DRIP
     Route: 041
     Dates: start: 20060518, end: 20060518

REACTIONS (5)
  - ANGER [None]
  - ANXIETY [None]
  - INSOMNIA [None]
  - NIGHTMARE [None]
  - POST-TRAUMATIC STRESS DISORDER [None]
